FAERS Safety Report 17180950 (Version 1)
Quarter: 2019Q4

REPORT INFORMATION
  Report Type: Spontaneous
  Country: PT (occurrence: PT)
  Receive Date: 20191219
  Receipt Date: 20191219
  Transmission Date: 20200122
  Serious: Yes (Death, Other)
  Sender: FDA-Public Use
  Company Number: PT-FRESENIUS KABI-FK201914154

PATIENT
  Age: 43 Year
  Sex: Male

DRUGS (1)
  1. DEXAMETHASONE INJECTION (MANUFACTURER UNKNOWN) [Suspect]
     Active Substance: DEXAMETHASONE
     Indication: GENERAL SYMPTOM
     Dosage: UNKNOWN
     Route: 065

REACTIONS (3)
  - Demyelination [Not Recovered/Not Resolved]
  - Laboratory test interference [Not Recovered/Not Resolved]
  - Disease progression [Fatal]
